FAERS Safety Report 9523815 (Version 2)
Quarter: 2013Q3

REPORT INFORMATION
  Report Type: Spontaneous
  Country: US (occurrence: US)
  Receive Date: 20130916
  Receipt Date: 20130927
  Transmission Date: 20140515
  Serious: Yes (Hospitalization)
  Sender: FDA-Public Use
  Company Number: US-ASTRAZENECA-2013SE68291

PATIENT
  Age: 53 Year
  Sex: Male
  Weight: 43.1 kg

DRUGS (8)
  1. ENTOCORT EC [Suspect]
     Indication: CROHN^S DISEASE
     Route: 048
     Dates: start: 2011, end: 201210
  2. ENTOCORT EC [Suspect]
     Indication: CROHN^S DISEASE
     Route: 048
     Dates: start: 201306, end: 201307
  3. MORPHINE [Suspect]
     Route: 065
  4. APRISO [Concomitant]
     Indication: CROHN^S DISEASE
     Route: 048
     Dates: start: 2011
  5. IRON [Concomitant]
     Indication: CROHN^S DISEASE
     Dosage: PRN
     Route: 048
     Dates: start: 2011
  6. PREDNISONE [Concomitant]
     Indication: CROHN^S DISEASE
     Route: 048
     Dates: start: 201308
  7. VITAMIN B [Concomitant]
     Indication: CROHN^S DISEASE
     Dosage: DAILY
     Route: 048
     Dates: start: 2011
  8. KLONOPIN [Concomitant]
     Indication: ANXIETY
     Route: 048

REACTIONS (11)
  - Gait disturbance [Unknown]
  - Pain [Unknown]
  - Muscle spasms [Unknown]
  - Aphagia [Unknown]
  - Weight increased [Unknown]
  - Weight decreased [Unknown]
  - Abdominal pain upper [Unknown]
  - Drug hypersensitivity [Unknown]
  - Intentional drug misuse [Unknown]
  - Drug dose omission [Unknown]
  - Off label use [Unknown]
